FAERS Safety Report 10134254 (Version 1)
Quarter: 2014Q2

REPORT INFORMATION
  Report Type: Spontaneous
  Country: US (occurrence: US)
  Receive Date: 20140428
  Receipt Date: 20140428
  Transmission Date: 20141212
  Serious: Yes (Death, Life-Threatening, Other)
  Sender: FDA-Public Use
  Company Number: US-B.I. PHARMACEUTICALS,INC./RIDGEFIELD-2014-BI-18704BP

PATIENT
  Age: 80 Year
  Sex: Male
  Weight: 63.9 kg

DRUGS (11)
  1. PRADAXA [Suspect]
     Indication: ATRIAL FIBRILLATION
     Route: 065
     Dates: start: 20110113
  2. ROSUVASTATIN (ROSUVASTATIN) [Concomitant]
     Route: 065
     Dates: start: 20111130
  3. FLUTICASONE (FLUTICASONE) [Concomitant]
     Indication: HYPERSENSITIVITY
     Route: 065
     Dates: start: 20100607
  4. CLARITIN (LORATADINE) [Concomitant]
     Indication: HYPERSENSITIVITY
     Route: 065
     Dates: start: 20100607
  5. METOPROLOL (METOPROLOL) [Concomitant]
     Route: 065
     Dates: start: 20100607
  6. SPIRIVA [Concomitant]
     Route: 065
     Dates: start: 20100607
  7. TEMAZEPAM (TEMAZEPAM) [Concomitant]
     Route: 065
     Dates: start: 20130415
  8. VESICARE (SOLIFENACIN SUCCINATE) [Concomitant]
     Route: 065
     Dates: start: 20130410
  9. OMEPRAZOLE (OMEPRAZOLE) [Concomitant]
     Route: 065
     Dates: start: 20130410
  10. OMEGA 3 (FISH OIL) [Concomitant]
     Route: 065
     Dates: start: 20100607
  11. CALCIUM 500+D (CALCIUM, COLECALCIFEROL) [Concomitant]
     Route: 065
     Dates: start: 20100607

REACTIONS (2)
  - Cerebral haemorrhage [Fatal]
  - Brain herniation [Fatal]
